FAERS Safety Report 13209948 (Version 1)
Quarter: 2017Q1

REPORT INFORMATION
  Report Type: Spontaneous
  Country: US (occurrence: US)
  Receive Date: 20170209
  Receipt Date: 20170209
  Transmission Date: 20170428
  Serious: No
  Sender: FDA-Public Use
  Company Number: US-ALLERGAN-1600390US

PATIENT
  Age: 41 Year
  Sex: Female

DRUGS (1)
  1. BOTOX [Suspect]
     Active Substance: ONABOTULINUMTOXINA
     Indication: MUSCLE SPASTICITY
     Dosage: 450 UNITS, SINGLE
     Route: 030
     Dates: start: 20151214, end: 20151214

REACTIONS (5)
  - Dysphagia [Recovering/Resolving]
  - Off label use [Unknown]
  - Eyelid ptosis [Recovering/Resolving]
  - Dysphonia [Recovering/Resolving]
  - Malaise [Recovering/Resolving]

NARRATIVE: CASE EVENT DATE: 201512
